FAERS Safety Report 5320061-5 (Version None)
Quarter: 2007Q2

REPORT INFORMATION
  Report Type: 
  Country: None (occurrence: None)
  Receive Date: 20070509
  Receipt Date: 20070502
  Transmission Date: 20071010
  Serious: Yes (Hospitalization)
  Sender: FDA-Public Use
  Company Number: TR-AVENTIS-200713893GDDC

PATIENT
  Age: 28 Year
  Sex: Female

DRUGS (2)
  1. CLOMIFENE [Suspect]
     Indication: INFERTILITY
     Route: 048
  2. CLOMIFENE [Suspect]
     Route: 048

REACTIONS (4)
  - ABDOMINAL PAIN UPPER [None]
  - NAUSEA [None]
  - PANCREATITIS ACUTE [None]
  - VOMITING [None]
